FAERS Safety Report 10453223 (Version 1)
Quarter: 2014Q3

REPORT INFORMATION
  Report Type: Spontaneous
  Country: NL (occurrence: NL)
  Receive Date: 20140915
  Receipt Date: 20140915
  Transmission Date: 20150326
  Serious: Yes (Other)
  Sender: FDA-Public Use
  Company Number: NL-PFIZER INC-2014250511

PATIENT
  Age: 67 Year
  Sex: Male

DRUGS (1)
  1. LYRICA [Suspect]
     Active Substance: PREGABALIN
     Indication: NEURALGIA
     Dosage: 75 MG, 4X/DAY

REACTIONS (3)
  - Respiratory depression [Not Recovered/Not Resolved]
  - Tachycardia [Not Recovered/Not Resolved]
  - Phrenic nerve paralysis [Unknown]
